FAERS Safety Report 21783247 (Version 3)
Quarter: 2023Q1

REPORT INFORMATION
  Report Type: Spontaneous
  Country: US (occurrence: US)
  Receive Date: 20221227
  Receipt Date: 20230102
  Transmission Date: 20230417
  Serious: No
  Sender: FDA-Public Use
  Company Number: US-SANOFI-01419393

PATIENT
  Age: 32 Year
  Sex: Female
  Weight: 82.1 kg

DRUGS (7)
  1. DUPIXENT [Suspect]
     Active Substance: DUPILUMAB
     Indication: Eczema
     Dosage: 300 MG, QOW
     Route: 058
     Dates: start: 20221007
  2. DUPIXENT [Suspect]
     Active Substance: DUPILUMAB
     Indication: Dermatitis allergic
  3. NEXPLANON [Concomitant]
     Active Substance: ETONOGESTREL
  4. PARAFFIN [Concomitant]
     Active Substance: PARAFFIN
  5. FLUOCINONIDE [Concomitant]
     Active Substance: FLUOCINONIDE
  6. TRIAMCINOLONE ACETONIDE [Concomitant]
     Active Substance: TRIAMCINOLONE ACETONIDE
  7. ALLEGRA ALLERGY [Concomitant]
     Active Substance: FEXOFENADINE HYDROCHLORIDE

REACTIONS (4)
  - Injection site pain [Unknown]
  - Eczema [Unknown]
  - Drug ineffective [Unknown]
  - Accidental exposure to product [Unknown]

NARRATIVE: CASE EVENT DATE: 20221212
